FAERS Safety Report 7892818-8 (Version None)
Quarter: 2011Q4

REPORT INFORMATION
  Report Type: 
  Country: None (occurrence: None)
  Receive Date: 20111104
  Receipt Date: 20111027
  Transmission Date: 20120403
  Serious: Yes (Other)
  Sender: FDA-Public Use
  Company Number: US-US-EMD SERONO, INC.-7034835

PATIENT
  Sex: Female
  Weight: 101 kg

DRUGS (6)
  1. REBIF [Suspect]
     Indication: MULTIPLE SCLEROSIS
     Route: 058
     Dates: start: 20091109
  2. LEVOXYL [Concomitant]
     Indication: HYPOTHYROIDISM
  3. CITALOPRAM HYDROBROMIDE [Concomitant]
     Indication: BIPOLAR DISORDER
  4. ABILIFY [Concomitant]
     Indication: BIPOLAR DISORDER
  5. RANITIDINE [Concomitant]
  6. ZANAFLEX [Concomitant]

REACTIONS (6)
  - FATIGUE [None]
  - CHILLS [None]
  - OPTIC NEURITIS [None]
  - MUSCULOSKELETAL STIFFNESS [None]
  - HYPOAESTHESIA [None]
  - MUSCLE SPASMS [None]
